FAERS Safety Report 7801507-7 (Version None)
Quarter: 2011Q4

REPORT INFORMATION
  Report Type: 
  Country: None (occurrence: None)
  Receive Date: 20111005
  Receipt Date: 20110927
  Transmission Date: 20120403
  Serious: Yes (Other)
  Sender: FDA-Public Use
  Company Number: AUR-APL-2011-05283

PATIENT
  Age: 52 Year
  Sex: Female
  Weight: 78 kg

DRUGS (4)
  1. TOPAMAX [Suspect]
     Indication: CONVULSION
     Dosage: 1600 MG (400 MG,4 IN 1 D)
  2. SYNTHROID [Concomitant]
  3. METFORMIN HCL [Suspect]
     Indication: DIABETES MELLITUS
     Dosage: (500 MG)
  4. DILANTIN [Suspect]
     Indication: CONVULSION
     Dosage: (400 MG) ; (300 MG)

REACTIONS (9)
  - ANTICONVULSANT DRUG LEVEL DECREASED [None]
  - BLOOD CREATININE INCREASED [None]
  - BONE DENSITY DECREASED [None]
  - ARTHRITIS [None]
  - COORDINATION ABNORMAL [None]
  - TREMOR [None]
  - OSTEOPOROSIS [None]
  - OSTEOPENIA [None]
  - BLOOD GLUCOSE INCREASED [None]
